FAERS Safety Report 6911829-X (Version None)
Quarter: 2010Q3

REPORT INFORMATION
  Report Type: 
  Country: None (occurrence: None)
  Receive Date: 20100806
  Receipt Date: 20070728
  Transmission Date: 20110219
  Serious: No
  Sender: FDA-Public Use
  Company Number: US-PFIZER INC-2007062985

PATIENT
  Sex: Male
  Weight: 63.6 kg

DRUGS (7)
  1. DETROL LA [Suspect]
     Indication: POLLAKIURIA
     Dates: start: 20070725
  2. ARICEPT [Concomitant]
  3. TOPROL-XL [Concomitant]
  4. PLAVIX [Concomitant]
  5. NEXIUM [Concomitant]
  6. TRAZODONE [Concomitant]
  7. ZOCOR [Concomitant]

REACTIONS (1)
  - URTICARIA [None]
